FAERS Safety Report 8134931-6 (Version None)
Quarter: 2012Q1

REPORT INFORMATION
  Report Type: 
  Country: None (occurrence: None)
  Receive Date: 20120214
  Receipt Date: 20120202
  Transmission Date: 20120608
  Serious: Yes (Other)
  Sender: FDA-Public Use
  Company Number: US-ELI_LILLY_AND_COMPANY-US201202001221

PATIENT
  Sex: Female

DRUGS (3)
  1. FORTEO [Suspect]
     Dosage: 20 UG, UNK
     Dates: start: 20100701, end: 20100801
  2. FORTEO [Suspect]
     Dosage: 20 UG, UNK
     Dates: start: 20110601
  3. FORTEO [Suspect]
     Dosage: 20 UG, UNK
     Dates: end: 20100501

REACTIONS (1)
  - SURGERY [None]
